FAERS Safety Report 25095591 (Version 1)
Quarter: 2025Q1

REPORT INFORMATION
  Report Type: Spontaneous
  Country: BE (occurrence: BE)
  Receive Date: 20250319
  Receipt Date: 20250319
  Transmission Date: 20250409
  Serious: Yes (Other)
  Sender: AMGEN
  Company Number: BE-JNJFOC-20250279541

PATIENT
  Age: 74 Year
  Sex: Male

DRUGS (3)
  1. XGEVA [Suspect]
     Active Substance: DENOSUMAB
     Indication: Hormone-refractory prostate cancer
     Route: 065
     Dates: start: 202412
  2. ZYTIGA [Suspect]
     Active Substance: ABIRATERONE ACETATE
     Indication: Hormone-refractory prostate cancer
     Route: 048
     Dates: start: 202412, end: 202501
  3. FIRMAGON [Suspect]
     Active Substance: DEGARELIX ACETATE
     Indication: Hormone-refractory prostate cancer
     Route: 065
     Dates: start: 202403

REACTIONS (1)
  - Hemiplegia [Recovered/Resolved]
